FAERS Safety Report 5778820-0 (Version None)
Quarter: 2008Q2

REPORT INFORMATION
  Report Type: 
  Country: None (occurrence: None)
  Receive Date: 20080619
  Receipt Date: 20080617
  Transmission Date: 20081010
  Serious: Yes (Death, Hospitalization)
  Sender: FDA-Public Use
  Company Number: PHEH2007US13052

PATIENT
  Sex: Male

DRUGS (1)
  1. EXJADE [Suspect]
     Indication: SICKLE CELL ANAEMIA
     Dosage: 1000 MG, QD
     Route: 048
     Dates: start: 20070809

REACTIONS (5)
  - BLOOD CREATININE INCREASED [None]
  - DEATH [None]
  - PNEUMONIA [None]
  - PYREXIA [None]
  - SERUM FERRITIN INCREASED [None]
